FAERS Safety Report 12822585 (Version 1)
Quarter: 2016Q4

REPORT INFORMATION
  Report Type: Spontaneous
  Country: US (occurrence: US)
  Receive Date: 20161007
  Receipt Date: 20161007
  Transmission Date: 20170207
  Serious: No
  Sender: FDA-Public Use
  Company Number: US-PFIZER INC-2016465634

PATIENT
  Age: 30 Year
  Sex: Female

DRUGS (1)
  1. IBRANCE [Suspect]
     Active Substance: PALBOCICLIB
     Indication: MULTIPLE SCLEROSIS
     Dosage: 100 MG, CYCLIC (DAILY FOR 21 DAYS)
     Route: 048
     Dates: start: 20160830

REACTIONS (3)
  - Headache [Unknown]
  - Abdominal pain upper [Unknown]
  - Product use issue [Unknown]

NARRATIVE: CASE EVENT DATE: 20160830
